FAERS Safety Report 9175074 (Version 1)
Quarter: 2013Q1

REPORT INFORMATION
  Report Type: Spontaneous
  Country: SE (occurrence: SE)
  Receive Date: 20130320
  Receipt Date: 20130320
  Transmission Date: 20140127
  Serious: Yes (Other)
  Sender: FDA-Public Use
  Company Number: SE-ROCHE-1054488

PATIENT
  Age: 55 Year
  Sex: Female

DRUGS (11)
  1. XOLAIR [Suspect]
     Indication: ASTHMA
     Route: 065
     Dates: start: 2005
  2. XOLAIR [Suspect]
     Indication: SEASONAL ALLERGY
     Dosage: 150-450 MG
     Route: 065
     Dates: start: 200704, end: 20110518
  3. XOLAIR [Suspect]
     Route: 065
     Dates: start: 200705
  4. XOLAIR [Suspect]
     Route: 065
     Dates: start: 2008
  5. XOLAIR [Suspect]
     Route: 065
     Dates: start: 2011
  6. XOLAIR [Suspect]
     Dosage: 150-450 MG
     Route: 065
     Dates: start: 20110518, end: 20110518
  7. BETAPRED [Concomitant]
  8. DEPO-MEDROL [Concomitant]
  9. SINGULAIR [Concomitant]
  10. NASONEX [Concomitant]
  11. SYMBICORT [Concomitant]

REACTIONS (3)
  - Breast cancer [Not Recovered/Not Resolved]
  - Drug ineffective [Unknown]
  - Depression [Unknown]
